FAERS Safety Report 8208819-6 (Version None)
Quarter: 2012Q1

REPORT INFORMATION
  Report Type: 
  Country: None (occurrence: None)
  Receive Date: 20120314
  Receipt Date: 20120308
  Transmission Date: 20120608
  Serious: Yes (Other)
  Sender: FDA-Public Use
  Company Number: US-PFIZER INC-2012062931

PATIENT
  Sex: Female
  Weight: 54.422 kg

DRUGS (4)
  1. LISINOPRIL [Concomitant]
     Indication: HYPERTENSION
     Dosage: 20 MG,DAILY
  2. SUTENT [Suspect]
     Dosage: 50 MG, 1X/DAY
     Route: 048
     Dates: end: 20120201
  3. SYNTHROID [Concomitant]
     Indication: THYROID DISORDER
     Dosage: 0.137 MG,DAILY
  4. HYDROCHLOROTHIAZIDE [Concomitant]
     Indication: HYPERTENSION
     Dosage: 25 MG,DAILY

REACTIONS (11)
  - DIPLOPIA [None]
  - MOBILITY DECREASED [None]
  - DIARRHOEA [None]
  - ORAL PAIN [None]
  - WEIGHT DECREASED [None]
  - ARTHRITIS [None]
  - FATIGUE [None]
  - NAUSEA [None]
  - APHAGIA [None]
  - PAIN IN EXTREMITY [None]
  - FEELING ABNORMAL [None]
